FAERS Safety Report 7146043-9 (Version None)
Quarter: 2010Q4

REPORT INFORMATION
  Report Type: 
  Country: None (occurrence: None)
  Receive Date: 20101208
  Receipt Date: 20101129
  Transmission Date: 20110411
  Serious: Yes (Other)
  Sender: FDA-Public Use
  Company Number: CA-JNJFOC-20101200828

PATIENT
  Sex: Female
  Weight: 82 kg

DRUGS (3)
  1. REMICADE [Suspect]
     Indication: PSORIATIC ARTHROPATHY
     Route: 042
  2. BENADRYL [Concomitant]
     Indication: PREMEDICATION
     Dosage: 25-50 MG.
     Route: 048
  3. TYLENOL-500 [Concomitant]
     Indication: PREMEDICATION
     Route: 048

REACTIONS (1)
  - EXOSTOSIS [None]
